FAERS Safety Report 22641447 (Version 1)
Quarter: 2023Q2

REPORT INFORMATION
  Report Type: Spontaneous
  Country: US (occurrence: None)
  Receive Date: 20230623
  Receipt Date: 20230623
  Transmission Date: 20230721
  Serious: Yes (Death)
  Sender: FDA-Public Use
  Company Number: None

PATIENT
  Age: 47 Year
  Sex: Female

DRUGS (1)
  1. PREVYMIS [Suspect]
     Active Substance: LETERMOVIR
     Dosage: FREQUENCY : DAILY;?
     Route: 058
     Dates: start: 202304, end: 20230507

REACTIONS (1)
  - Death [None]

NARRATIVE: CASE EVENT DATE: 20230507
